FAERS Safety Report 4938302-2 (Version None)
Quarter: 2006Q1

REPORT INFORMATION
  Report Type: 
  Country: None (occurrence: None)
  Receive Date: 20060309
  Receipt Date: 20050506
  Transmission Date: 20060701
  Serious: Yes (Death, Life-Threatening)
  Sender: FDA-Public Use
  Company Number: HCM-0061

PATIENT
  Age: 82 Year
  Sex: Male

DRUGS (24)
  1. HYCAMTIN [Suspect]
     Dosage: 1.5MG PER DAY
     Route: 042
     Dates: start: 20040805, end: 20040809
  2. GRANISETRON  HCL [Concomitant]
     Indication: DRUG USE FOR UNKNOWN INDICATION
     Dosage: 1AMP PER DAY
     Route: 042
     Dates: start: 20040805, end: 20040809
  3. GRANISETRON  HCL [Concomitant]
     Dosage: 2TAB PER DAY
     Route: 048
     Dates: start: 20040810, end: 20040814
  4. DEXAMETHASONE SODIUM PHOSPHATE [Concomitant]
     Indication: DRUG USE FOR UNKNOWN INDICATION
     Dosage: 4MG PER DAY
     Route: 042
     Dates: start: 20040805, end: 20040806
  5. PREDNISOLONE [Concomitant]
     Indication: DRUG USE FOR UNKNOWN INDICATION
     Route: 042
     Dates: start: 20040807, end: 20040809
  6. METOCLOPRAMIDE [Concomitant]
     Indication: DRUG USE FOR UNKNOWN INDICATION
     Dosage: 1AMP PER DAY
     Route: 042
     Dates: start: 20040805, end: 20040809
  7. HYDROCORTISONE SODIUM SUCCINATE [Concomitant]
     Indication: DRUG USE FOR UNKNOWN INDICATION
     Dosage: 100MG PER DAY
     Route: 042
     Dates: start: 20040810, end: 20040813
  8. FUROSEMIDE [Concomitant]
     Indication: DRUG USE FOR UNKNOWN INDICATION
     Dosage: 1AMP PER DAY
     Route: 042
     Dates: start: 20040805, end: 20040807
  9. MEROPENEM [Concomitant]
     Dosage: 1G PER DAY
     Route: 042
     Dates: start: 20040827, end: 20040913
  10. CANDESARTAN [Concomitant]
     Indication: DRUG USE FOR UNKNOWN INDICATION
     Dosage: 8MG PER DAY
     Route: 048
     Dates: start: 20040805, end: 20040810
  11. ATENOLOL [Concomitant]
     Indication: DRUG USE FOR UNKNOWN INDICATION
     Dosage: 50MG PER DAY
     Route: 048
     Dates: start: 20040805, end: 20040810
  12. SPIRONOLACTONE [Concomitant]
     Indication: DRUG USE FOR UNKNOWN INDICATION
     Dosage: 25MG PER DAY
     Route: 048
     Dates: start: 20040805, end: 20040810
  13. DOXAZOSIN MESYLATE [Concomitant]
     Indication: DRUG USE FOR UNKNOWN INDICATION
     Dosage: 4MG PER DAY
     Route: 048
     Dates: start: 20040805, end: 20040810
  14. NICORANDIL [Concomitant]
     Indication: DRUG USE FOR UNKNOWN INDICATION
     Dosage: 15MG PER DAY
     Route: 048
     Dates: start: 20040805
  15. HALOPERIDOL [Concomitant]
     Indication: DRUG USE FOR UNKNOWN INDICATION
     Route: 048
     Dates: start: 20040806, end: 20040811
  16. OXYCODONE HCL [Concomitant]
     Indication: DRUG USE FOR UNKNOWN INDICATION
     Dosage: 10MG PER DAY
     Route: 048
     Dates: start: 20040806
  17. OMEPRAZOLE SODIUM [Concomitant]
     Indication: DRUG USE FOR UNKNOWN INDICATION
     Dosage: 40MG PER DAY
     Route: 042
     Dates: start: 20040808, end: 20040809
  18. FAMOTIDINE [Concomitant]
     Indication: DRUG USE FOR UNKNOWN INDICATION
     Dosage: 40MG PER DAY
     Route: 048
     Dates: start: 20040810, end: 20040901
  19. FAMOTIDINE [Concomitant]
     Dosage: 40MG PER DAY
     Route: 042
     Dates: start: 20040901
  20. MAGNESIUM [Concomitant]
     Indication: DRUG USE FOR UNKNOWN INDICATION
     Dosage: 990MG PER DAY
     Route: 048
     Dates: start: 20040817, end: 20040901
  21. RISPERIDONE [Concomitant]
     Indication: DRUG USE FOR UNKNOWN INDICATION
     Dosage: .5MG PER DAY
     Route: 048
     Dates: start: 20040812, end: 20040816
  22. PEROSPIRONE [Concomitant]
     Indication: DRUG USE FOR UNKNOWN INDICATION
     Route: 048
     Dates: start: 20040817
  23. BETHANECHOL CHLORIDE [Concomitant]
     Indication: DRUG USE FOR UNKNOWN INDICATION
     Dosage: 1G PER DAY
     Route: 048
     Dates: start: 20040827, end: 20040901
  24. TAMSULOSIN HCL [Concomitant]
     Indication: DRUG USE FOR UNKNOWN INDICATION
     Dosage: .1MG PER DAY
     Route: 048
     Dates: start: 20040827, end: 20040901

REACTIONS (6)
  - ANAEMIA [None]
  - DISEASE PROGRESSION [None]
  - NEUTROPHIL COUNT DECREASED [None]
  - PLATELET COUNT DECREASED [None]
  - PYREXIA [None]
  - WHITE BLOOD CELL COUNT DECREASED [None]
